FAERS Safety Report 9414600 (Version 1)
Quarter: 2013Q3

REPORT INFORMATION
  Report Type: Spontaneous
  Country: FR (occurrence: FR)
  Receive Date: 20130717
  Receipt Date: 20130717
  Transmission Date: 20140515
  Serious: Yes (Other)
  Sender: FDA-Public Use
  Company Number: SYM-2013-06078

PATIENT
  Age: 56 Year
  Sex: Female

DRUGS (6)
  1. FLUOROURACIL (FLUOROURACIL)(FLUOROURACIL) [Suspect]
     Indication: METASTASES TO PERITONEUM
  2. FLUOROURACIL (FLUOROURACIL)(FLUOROURACIL) [Suspect]
     Indication: METASTASES TO OVARY
  3. FOLINIC ACID (FOLINIC ACID)(FOLINIC ACID) [Suspect]
     Indication: METASTASES TO PERITONEUM
  4. FOLINIC ACID (FOLINIC ACID)(FOLINIC ACID) [Suspect]
     Indication: METASTASES TO OVARY
  5. IRINOTECAN [Suspect]
     Indication: METASTASES TO PERITONEUM
  6. IRINOTECAN [Suspect]
     Indication: METASTASES TO OVARY

REACTIONS (2)
  - Intestinal obstruction [None]
  - General physical health deterioration [None]
